FAERS Safety Report 5779221-1 (Version None)
Quarter: 2008Q2

REPORT INFORMATION
  Report Type: 
  Country: None (occurrence: None)
  Receive Date: 20080619
  Receipt Date: 20080520
  Transmission Date: 20081010
  Serious: No
  Sender: FDA-Public Use
  Company Number: US-BAYER-200823486NA

PATIENT
  Age: 43 Year
  Sex: Female
  Weight: 129 kg

DRUGS (5)
  1. ULTRAVIST 370 [Suspect]
     Indication: COMPUTERISED TOMOGRAM ABDOMEN
     Dosage: TOTAL DAILY DOSE: 150 ML  UNIT DOSE: 500 ML
     Route: 042
     Dates: start: 20080520, end: 20080520
  2. PRILOSEC [Concomitant]
  3. ZOLOFT [Concomitant]
  4. VITAMIN B COMPLEX CAP [Concomitant]
  5. VITAMIN TAB [Concomitant]

REACTIONS (2)
  - ERYTHEMA [None]
  - PRURITUS [None]
